FAERS Safety Report 4396316-8 (Version None)
Quarter: 2004Q3

REPORT INFORMATION
  Report Type: 
  Country: None (occurrence: None)
  Receive Date: 20040713
  Receipt Date: 20040630
  Transmission Date: 20050211
  Serious: Yes (Other)
  Sender: FDA-Public Use
  Company Number: 371791

PATIENT
  Age: 79 Year
  Sex: Female

DRUGS (4)
  1. DILATREND [Suspect]
     Route: 048
     Dates: start: 20020115
  2. ASPIRIN [Concomitant]
  3. VASILIP [Concomitant]
  4. AMLOPIN [Concomitant]

REACTIONS (3)
  - BRADYCARDIA [None]
  - DYSPNOEA [None]
  - EXTRASYSTOLES [None]
